FAERS Safety Report 9702886 (Version 3)
Quarter: 2014Q1

REPORT INFORMATION
  Report Type: Spontaneous
  Country: US (occurrence: US)
  Receive Date: 20131121
  Receipt Date: 20140211
  Transmission Date: 20141002
  Serious: Yes (Hospitalization, Other)
  Sender: FDA-Public Use
  Company Number: US-GILEAD-2013-0088300

PATIENT
  Age: 63 Year
  Sex: Male
  Weight: 73.47 kg

DRUGS (28)
  1. ATRIPLA [Suspect]
     Indication: HIV INFECTION
     Dosage: 1 DF, QD
     Route: 048
     Dates: start: 20130924, end: 20131114
  2. PHENYTOIN [Suspect]
     Indication: CONVULSION
     Dosage: 100 MG, TID
     Route: 048
     Dates: start: 20131008, end: 20131114
  3. PHENYTOIN [Suspect]
     Dosage: UNK
     Route: 042
  4. NEVIRAPINE [Suspect]
     Indication: HIV INFECTION
     Dosage: UNK
     Route: 065
     Dates: end: 20130924
  5. TRIZIVIR [Suspect]
     Indication: HIV INFECTION
     Dosage: UNK
     Route: 065
     Dates: end: 20130924
  6. ALBUTEROL                          /00139501/ [Concomitant]
     Indication: CHRONIC OBSTRUCTIVE PULMONARY DISEASE
     Route: 065
  7. ATORVASTATIN [Concomitant]
     Indication: BLOOD CHOLESTEROL INCREASED
     Dosage: 80 MG, QD
     Route: 048
  8. CETIRIZINE [Concomitant]
     Indication: SEASONAL ALLERGY
     Dosage: 10 MG, QD
     Route: 048
  9. VITAMIN D NOS [Concomitant]
     Indication: VITAMIN D DEFICIENCY
     Dosage: 1000 IU, QD
     Route: 048
  10. FUROSEMIDE [Concomitant]
     Indication: FLUID RETENTION
     Dosage: 20 MG, QD
     Route: 048
  11. GABAPENTIN [Concomitant]
     Indication: CONVULSION
     Dosage: 300 MG, TID
     Route: 048
  12. TRIAMTERENE/HCTZ [Concomitant]
     Indication: HYPERTENSION
     Dosage: UNK, QD
     Route: 048
  13. VICODIN [Concomitant]
     Indication: PAIN
     Route: 048
  14. INSULIN GLARGINE [Concomitant]
     Indication: TYPE 2 DIABETES MELLITUS
     Dosage: UNK
     Route: 058
  15. INSULIN ASPART [Concomitant]
     Indication: TYPE 2 DIABETES MELLITUS
     Route: 058
  16. ISOSORBIDE MONONITRATE [Concomitant]
     Indication: CORONARY ARTERY DISEASE
     Dosage: 15 MG, QD
     Route: 048
  17. LAMOTRIGINE [Concomitant]
     Indication: CONVULSION
     Route: 048
  18. LISINOPRIL [Concomitant]
     Indication: HYPERTENSION
     Dosage: 40 MG, QD
     Route: 048
  19. LORAZEPAM [Concomitant]
     Indication: ANXIETY
     Dosage: 1 MG, UNK
     Route: 048
  20. MAGNESIUM OXIDE [Concomitant]
     Indication: MAGNESIUM DEFICIENCY
     Dosage: 400 MG, QD
     Route: 048
  21. METOPROLOL TARTRATE [Concomitant]
     Indication: HYPERTENSION
     Dosage: 25 MG, BID
     Route: 048
  22. NAPROXEN [Concomitant]
     Indication: PAIN
     Dosage: 500 MG, BID
     Route: 048
  23. NITROGLYCERINE [Concomitant]
     Indication: CORONARY ARTERY DISEASE
     Dosage: 0.4 MG, PRN
     Route: 048
  24. OMEPRAZOLE [Concomitant]
     Indication: GASTROOESOPHAGEAL REFLUX DISEASE
     Dosage: 20 MG, QD
     Route: 048
  25. OXYBUTYNIN [Concomitant]
     Indication: HYPERTONIC BLADDER
     Dosage: 10 MG, QD
     Route: 048
  26. PRAZOSIN [Concomitant]
     Indication: NIGHTMARE
     Dosage: 1 MG, QD
     Route: 048
  27. SERTRALINE [Concomitant]
     Indication: DEPRESSION
     Dosage: 100 MG, BID
     Route: 048
  28. ZOLPIDEM [Concomitant]
     Indication: ANXIETY
     Dosage: 10 MG, PRN
     Route: 048

REACTIONS (1)
  - Convulsion [Recovered/Resolved]
